FAERS Safety Report 8793516 (Version 1)
Quarter: 2012Q4

REPORT INFORMATION
  Report Type: 
  Country: US (occurrence: US)
  Receive Date: 20120918
  Receipt Date: 20120918
  Transmission Date: 20130627
  Serious: Yes (Other)
  Sender: FDA-Public Use
  Company Number: PHEH2012US018135

PATIENT
  Age: 40 Year
  Sex: Female
  Weight: 63.49 kg

DRUGS (4)
  1. GILENYA [Suspect]
     Indication: MULTIPLE SCLEROSIS
     Dosage: 0.5 mg, QD
     Route: 048
     Dates: start: 20120801
  2. TRAZODONE [Concomitant]
  3. NEURONTIN [Concomitant]
  4. QUETIAPINE [Concomitant]

REACTIONS (3)
  - Wrist fracture [Unknown]
  - Fall [Unknown]
  - Weight decreased [Unknown]
